FAERS Safety Report 8954863 (Version 1)
Quarter: 2012Q4

REPORT INFORMATION
  Report Type: 
  Country: US (occurrence: US)
  Receive Date: 20121207
  Receipt Date: 20121207
  Transmission Date: 20130627
  Serious: Yes (Life-Threatening, Other)
  Sender: FDA-Public Use
  Company Number: CHPA2012US024790

PATIENT
  Age: 84 Year
  Sex: Female

DRUGS (6)
  1. MYOFLEX ANALGESIC CREME [Suspect]
     Indication: PAIN
     Dosage: 1/4 to 1/2 INCH, AT NIGHT, PRN
     Route: 061
  2. LISINOPRIL [Concomitant]
     Indication: HYPERTENSION
     Dosage: 2 Unk, A DAY
     Route: 048
  3. LABETALOL [Concomitant]
     Indication: HYPERTENSION
     Dosage: 200 mg, QD
     Route: 048
  4. AMLODIPINE [Concomitant]
     Indication: HYPERTENSION
     Dosage: 10 mg, QD
     Route: 048
  5. ANTIHYPERTENSIVES [Concomitant]
     Indication: HYPERTENSION
     Dosage: Unk, Unk
  6. INFLUENZA [Concomitant]
     Indication: PROPHYLAXIS
     Dosage: Unk, ONCE

REACTIONS (12)
  - Asthenia [Recovered/Resolved]
  - Dehydration [Recovered/Resolved]
  - Diarrhoea [Recovered/Resolved]
  - Musculoskeletal pain [Not Recovered/Not Resolved]
  - Steatorrhoea [Recovered/Resolved]
  - Tenderness [Not Recovered/Not Resolved]
  - Weight decreased [Recovered/Resolved]
  - Malaise [Recovered/Resolved]
  - Crying [Recovered/Resolved]
  - Gait disturbance [Recovered/Resolved]
  - Pain [Not Recovered/Not Resolved]
  - Expired drug administered [Unknown]
